FAERS Safety Report 8032154-2 (Version None)
Quarter: 2012Q1

REPORT INFORMATION
  Report Type: 
  Country: None (occurrence: None)
  Receive Date: 20120109
  Receipt Date: 20111201
  Transmission Date: 20120608
  Serious: Yes (Life-Threatening, Other)
  Sender: FDA-Public Use
  Company Number: US-ROCHE-1021649

PATIENT

DRUGS (3)
  1. EVEROLIMUS [Suspect]
     Indication: WALDENSTROM'S MACROGLOBULINAEMIA
     Route: 048
  2. BORTEZOMIB [Suspect]
     Indication: WALDENSTROM'S MACROGLOBULINAEMIA
     Route: 042
  3. MABTHERA [Suspect]
     Indication: WALDENSTROM'S MACROGLOBULINAEMIA
     Route: 042

REACTIONS (11)
  - LEUKOPENIA [None]
  - PNEUMONITIS [None]
  - HYPERTRIGLYCERIDAEMIA [None]
  - NEUROPATHY PERIPHERAL [None]
  - HERPES ZOSTER [None]
  - HYPERGLYCAEMIA [None]
  - THROMBOCYTOPENIA [None]
  - LYMPHOPENIA [None]
  - NEUTROPENIA [None]
  - HYPERNATRAEMIA [None]
  - ANAEMIA [None]
